FAERS Safety Report 18342710 (Version 1)
Quarter: 2020Q4

REPORT INFORMATION
  Report Type: Spontaneous
  Country: FR (occurrence: FR)
  Receive Date: 20201005
  Receipt Date: 20201005
  Transmission Date: 20210113
  Serious: Yes (Other)
  Sender: FDA-Public Use
  Company Number: FR-AMGEN-FRASP2020157127

PATIENT
  Age: 83 Year
  Sex: Male

DRUGS (10)
  1. OTEZLA [Suspect]
     Active Substance: APREMILAST
     Indication: PSORIASIS
     Dosage: 30 MILLIGRAM, BID
     Route: 065
     Dates: start: 20200728, end: 20200806
  2. ATORVASTATIN [Concomitant]
     Active Substance: ATORVASTATIN
     Dosage: UNK (10)
  3. BISOCE [Concomitant]
     Active Substance: BISOPROLOL
     Dosage: UNK (2.5)
  4. ASPIRIN PROTECT [Concomitant]
     Active Substance: ASPIRIN
     Dosage: UNK (100)
  5. METFORMIN [Concomitant]
     Active Substance: METFORMIN HYDROCHLORIDE
     Dosage: UNK, 500X3
  6. CANDESARTAN. [Concomitant]
     Active Substance: CANDESARTAN
  7. LERCAN [Concomitant]
     Active Substance: LERCANIDIPINE
     Dosage: UNK, 20X2
  8. FUROSEMIDE. [Concomitant]
     Active Substance: FUROSEMIDE
     Dosage: UNK, 20
  9. OTEZLA [Suspect]
     Active Substance: APREMILAST
     Dosage: 30 MILLIGRAM, QD
     Route: 065
     Dates: start: 20200807, end: 20200828
  10. PANTOPRAZOLE [Concomitant]
     Active Substance: PANTOPRAZOLE
     Dosage: UNK (40)

REACTIONS (4)
  - Decreased appetite [Unknown]
  - Psoriasis [Unknown]
  - Diarrhoea [Unknown]
  - Renal failure [Unknown]

NARRATIVE: CASE EVENT DATE: 2020
